FAERS Safety Report 20910541 (Version 2)
Quarter: 2022Q2

REPORT INFORMATION
  Report Type: Spontaneous
  Country: US (occurrence: US)
  Receive Date: 20220603
  Receipt Date: 20220620
  Transmission Date: 20220721
  Serious: Yes (Other)
  Sender: FDA-Public Use
  Company Number: US-PFIZER INC-202200782899

PATIENT
  Age: 66 Year
  Sex: Female
  Weight: 58.06 kg

DRUGS (1)
  1. ESTRING [Suspect]
     Active Substance: ESTRADIOL
     Indication: Atrophic vulvovaginitis
     Dosage: 2 MG (INSERT FOR 3 MONTHS)

REACTIONS (1)
  - Limb operation [Unknown]

NARRATIVE: CASE EVENT DATE: 20210707
